FAERS Safety Report 25319230 (Version 1)
Quarter: 2025Q2

REPORT INFORMATION
  Report Type: Spontaneous
  Country: US (occurrence: US)
  Receive Date: 20250515
  Receipt Date: 20250515
  Transmission Date: 20250716
  Serious: Yes (Hospitalization)
  Sender: STRIDES
  Company Number: US-STRIDES ARCOLAB LIMITED-2025SP002068

PATIENT
  Age: 78 Year
  Sex: Male

DRUGS (8)
  1. METFORMIN [Suspect]
     Active Substance: METFORMIN HYDROCHLORIDE
     Indication: Type 2 diabetes mellitus
     Route: 065
  2. VANCOMYCIN [Suspect]
     Active Substance: VANCOMYCIN
     Indication: Diabetic foot
     Route: 065
  3. AZACITIDINE [Concomitant]
     Active Substance: AZACITIDINE
     Indication: Chronic myeloid leukaemia
     Route: 065
  4. AZACITIDINE [Concomitant]
     Active Substance: AZACITIDINE
     Indication: Myelodysplastic syndrome/myeloproliferative neoplasm overlap syndrome
  5. VENETOCLAX [Concomitant]
     Active Substance: VENETOCLAX
     Indication: Chronic myeloid leukaemia
     Route: 065
  6. VENETOCLAX [Concomitant]
     Active Substance: VENETOCLAX
     Indication: Myelodysplastic syndrome/myeloproliferative neoplasm overlap syndrome
  7. DARBEPOETIN ALFA [Concomitant]
     Active Substance: DARBEPOETIN ALFA
     Indication: Iron deficiency anaemia
     Route: 065
  8. CEFEPIME [Concomitant]
     Active Substance: CEFEPIME HYDROCHLORIDE
     Indication: Diabetic foot
     Route: 065

REACTIONS (2)
  - Drug ineffective [Unknown]
  - Off label use [Unknown]
